FAERS Safety Report 21155554 (Version 1)
Quarter: 2022Q3

REPORT INFORMATION
  Report Type: Spontaneous
  Country: US (occurrence: None)
  Receive Date: 20220729
  Receipt Date: 20220729
  Transmission Date: 20221027
  Serious: Yes (Hospitalization)
  Sender: FDA-Public Use
  Company Number: None

PATIENT
  Age: 69 Year
  Sex: Female

DRUGS (1)
  1. CYCLOPHOSPHAMIDE [Suspect]
     Active Substance: CYCLOPHOSPHAMIDE
     Indication: Ovarian cancer
     Dosage: 50MG DAILY ORAL
     Route: 048
     Dates: start: 202205

REACTIONS (3)
  - Hydronephrosis [None]
  - Blood creatinine increased [None]
  - Therapy interrupted [None]

NARRATIVE: CASE EVENT DATE: 20220714
